FAERS Safety Report 9351251 (Version 1)
Quarter: 2013Q2

REPORT INFORMATION
  Report Type: Spontaneous
  Country: US (occurrence: US)
  Receive Date: 20130617
  Receipt Date: 20130617
  Transmission Date: 20140414
  Serious: No
  Sender: FDA-Public Use
  Company Number: US-UPSHER-SMITH LABORATORIES, INC.-13001478

PATIENT
  Age: 82 Year
  Sex: Female

DRUGS (15)
  1. PACERONE (USL) [Suspect]
     Indication: ATRIAL FIBRILLATION
     Dosage: 200 MG, QD
     Route: 048
     Dates: start: 201304, end: 201304
  2. PACERONE (USL) [Suspect]
     Dosage: 200 MG, BID
     Route: 048
     Dates: start: 201304, end: 201304
  3. COREG [Concomitant]
     Indication: ATRIAL FIBRILLATION
     Dosage: UNK
  4. WARFARIN [Concomitant]
     Indication: ATRIAL FIBRILLATION
     Dosage: UNK
  5. LANTUS [Concomitant]
     Indication: DIABETES MELLITUS
     Dosage: UNK
  6. METFORMIN [Concomitant]
     Indication: DIABETES MELLITUS
     Dosage: UNK
  7. QUESTRAN [Concomitant]
     Indication: BLOOD CHOLESTEROL INCREASED
     Dosage: UNK
  8. LOTREL                             /01289101/ [Concomitant]
     Indication: HYPERTENSION
     Dosage: UNK
  9. LASIX                              /00032601/ [Concomitant]
     Indication: HYPERTENSION
     Dosage: UNK
  10. POTASSIUM CHLORIDE [Concomitant]
     Dosage: UNK
  11. PLAVIX                             /01220701/ [Concomitant]
     Dosage: UNK
  12. ASPIRIN [Concomitant]
     Dosage: UNK
  13. FOLIC ACID [Concomitant]
     Dosage: UNK
  14. FERROUS SULFATE [Concomitant]
     Dosage: UNK
  15. ALPHA LIPOIC ACID [Concomitant]
     Dosage: UNK

REACTIONS (2)
  - Hypoacusis [Not Recovered/Not Resolved]
  - Muscle twitching [Not Recovered/Not Resolved]
